FAERS Safety Report 6787738-6 (Version None)
Quarter: 2010Q2

REPORT INFORMATION
  Report Type: 
  Country: None (occurrence: None)
  Receive Date: 20100623
  Receipt Date: 20070811
  Transmission Date: 20101027
  Serious: No
  Sender: FDA-Public Use
  Company Number: US-PFIZER INC-2007066526

PATIENT
  Sex: Male
  Weight: 99 kg

DRUGS (7)
  1. SOLU-MEDROL [Suspect]
     Indication: MULTIPLE SCLEROSIS
     Route: 042
     Dates: start: 19960101
  2. OXYCONTIN [Concomitant]
  3. CONCERTA [Concomitant]
  4. PROVIGIL [Concomitant]
  5. CYMBALTA [Concomitant]
  6. XANAX [Concomitant]
  7. AMBIEN [Concomitant]

REACTIONS (4)
  - ANXIETY [None]
  - DYSGEUSIA [None]
  - PRODUCT QUALITY ISSUE [None]
  - SUDDEN ONSET OF SLEEP [None]
